FAERS Safety Report 8953112 (Version 1)
Quarter: 2012Q4

REPORT INFORMATION
  Report Type: 
  Country: US (occurrence: US)
  Receive Date: 20121206
  Receipt Date: 20121206
  Transmission Date: 20130627
  Serious: Yes (Hospitalization, Other)
  Sender: FDA-Public Use
  Company Number: US-009507513-1212USA000830

PATIENT
  Sex: Female

DRUGS (4)
  1. PEGINTRON [Suspect]
     Indication: HEPATITIS C
     Dosage: Redipen
     Dates: start: 20070122, end: 20070301
  2. PEGINTRON [Suspect]
     Dosage: UNK
     Dates: start: 20121127
  3. RIBAVIRIN [Suspect]
     Indication: HEPATITIS C
     Dosage: UNK
     Dates: start: 20070122, end: 20070301
  4. RIBAVIRIN [Suspect]
     Dosage: UNK
     Dates: start: 20121127

REACTIONS (1)
  - Appendicitis [Unknown]
